FAERS Safety Report 11565112 (Version 2)
Quarter: 2015Q4

REPORT INFORMATION
  Report Type: Spontaneous
  Country: US (occurrence: US)
  Receive Date: 20150928
  Receipt Date: 20151218
  Transmission Date: 20160304
  Serious: No
  Sender: FDA-Public Use
  Company Number: US-OTSUKA-2015_002580

PATIENT
  Age: 43 Year
  Sex: Female
  Weight: 92.53 kg

DRUGS (5)
  1. ABILIFY MAINTENA [Suspect]
     Active Substance: ARIPIPRAZOLE
     Dosage: 400 MG, QM
     Route: 030
     Dates: start: 20150601
  2. TOPAMAX [Concomitant]
     Active Substance: TOPIRAMATE
     Indication: PRODUCT USED FOR UNKNOWN INDICATION
     Dosage: 100 MG, BID
     Route: 065
     Dates: start: 20150311
  3. ABILIFY MAINTENA [Suspect]
     Active Substance: ARIPIPRAZOLE
     Indication: BIPOLAR I DISORDER
     Dosage: 300 MG, QM
     Route: 030
     Dates: start: 20150311
  4. PRAZOSIN [Concomitant]
     Active Substance: PRAZOSIN
     Indication: NIGHTMARE
     Dosage: 3 MG, UNK
     Route: 065
     Dates: start: 20150409
  5. BUSPAR [Concomitant]
     Active Substance: BUSPIRONE HYDROCHLORIDE
     Indication: PRODUCT USED FOR UNKNOWN INDICATION
     Dosage: 10 MG, BID
     Route: 065
     Dates: start: 20150601

REACTIONS (4)
  - Underdose [Unknown]
  - Syringe issue [Unknown]
  - No adverse event [Unknown]
  - Off label use [Unknown]

NARRATIVE: CASE EVENT DATE: 20150311
